FAERS Safety Report 19240902 (Version 2)
Quarter: 2021Q2

REPORT INFORMATION
  Report Type: Spontaneous
  Country: JP (occurrence: JP)
  Receive Date: 20210511
  Receipt Date: 20210526
  Transmission Date: 20210717
  Serious: Yes (Death, Other)
  Sender: FDA-Public Use
  Company Number: JP-TEVA-202105_00011675

PATIENT
  Age: 85 Year
  Sex: Male

DRUGS (11)
  1. BLOPRESS TABLETS 8 [Suspect]
     Active Substance: CANDESARTAN CILEXETIL
     Indication: PRODUCT USED FOR UNKNOWN INDICATION
     Route: 048
  2. ROXADUSTAT. [Suspect]
     Active Substance: ROXADUSTAT
     Route: 048
     Dates: start: 20210401
  3. TAKECAB [Suspect]
     Active Substance: VONOPRAZAN FUMARATE
     Indication: PRODUCT USED FOR UNKNOWN INDICATION
     Route: 048
  4. GASCON [Suspect]
     Active Substance: DIMETHICONE
     Indication: PRODUCT USED FOR UNKNOWN INDICATION
     Route: 065
  5. DARBEPOETIN ALFA [Concomitant]
     Active Substance: DARBEPOETIN ALFA
     Indication: NEPHROGENIC ANAEMIA
     Route: 065
  6. REFLEX [Suspect]
     Active Substance: MIRTAZAPINE
     Indication: PRODUCT USED FOR UNKNOWN INDICATION
     Route: 048
  7. REMITCH [Suspect]
     Active Substance: NALFURAFINE HYDROCHLORIDE
     Indication: PRODUCT USED FOR UNKNOWN INDICATION
     Route: 048
  8. ROXADUSTAT. [Suspect]
     Active Substance: ROXADUSTAT
     Indication: NEPHROGENIC ANAEMIA
     Route: 048
     Dates: start: 20210330
  9. ZESULAN [Suspect]
     Active Substance: MEQUITAZINE
     Indication: PRODUCT USED FOR UNKNOWN INDICATION
     Route: 048
  10. DONEPEZIL HYDROCHLORIDE TABLET 10MG ^TYK^ [Suspect]
     Active Substance: DONEPEZIL HYDROCHLORIDE
     Indication: PRODUCT USED FOR UNKNOWN INDICATION
     Route: 048
  11. ATELEC [Suspect]
     Active Substance: CILNIDIPINE
     Indication: PRODUCT USED FOR UNKNOWN INDICATION
     Route: 048

REACTIONS (2)
  - Marasmus [Fatal]
  - Metastatic neoplasm [Fatal]
